FAERS Safety Report 25890530 (Version 1)
Quarter: 2025Q4

REPORT INFORMATION
  Report Type: Spontaneous
  Country: US (occurrence: None)
  Receive Date: 20251006
  Receipt Date: 20251006
  Transmission Date: 20260117
  Serious: Yes (Hospitalization)
  Sender: FDA-CTU
  Company Number: None

PATIENT
  Age: 3 Year
  Sex: Male
  Weight: 19.35 kg

DRUGS (2)
  1. KIDS COUGH AND CHEST CONGESTION [Suspect]
     Active Substance: DEXTROMETHORPHAN HYDROBROMIDE\GUAIFENESIN
     Indication: Seasonal allergy
     Dates: start: 20250930, end: 20250930
  2. Childrens Claritin Liquid [Concomitant]

REACTIONS (3)
  - Irritability [None]
  - Ear, nose and throat disorder [None]
  - Rash [None]

NARRATIVE: CASE EVENT DATE: 20250930
